FAERS Safety Report 11690274 (Version 1)
Quarter: 2015Q4

REPORT INFORMATION
  Report Type: Spontaneous
  Country: ES (occurrence: ES)
  Receive Date: 20151102
  Receipt Date: 20151102
  Transmission Date: 20160304
  Serious: Yes (Hospitalization)
  Sender: FDA-Public Use
  Company Number: ES-MYLANLABS-2015M1037133

PATIENT

DRUGS (2)
  1. CARBAMAZEPINE. [Suspect]
     Active Substance: CARBAMAZEPINE
     Indication: MYOCLONUS
     Dosage: 100 MG, UNK
     Route: 065
  2. ETANERCEPT [Suspect]
     Active Substance: ETANERCEPT
     Indication: PSORIASIS
     Dosage: 25 MG, BIWEEKLY
     Route: 065

REACTIONS (5)
  - Myoclonus [Recovering/Resolving]
  - Drug withdrawal syndrome [Unknown]
  - Dizziness [Recovering/Resolving]
  - Interstitial granulomatous dermatitis [Unknown]
  - Nausea [Recovering/Resolving]
